FAERS Safety Report 8232182-8 (Version None)
Quarter: 2012Q1

REPORT INFORMATION
  Report Type: 
  Country: None (occurrence: None)
  Receive Date: 20120323
  Receipt Date: 20120316
  Transmission Date: 20120608
  Serious: Yes (Death)
  Sender: FDA-Public Use
  Company Number: JP-EISAI INC-E7389-01597-CLI-JP

PATIENT
  Sex: Female
  Weight: 62 kg

DRUGS (20)
  1. HALAVEN [Suspect]
     Indication: METASTASES TO LYMPH NODES
  2. MOTILIUM [Concomitant]
     Route: 048
  3. MERISLON [Concomitant]
     Route: 048
  4. LASIX [Concomitant]
     Route: 048
  5. LENDORMIN [Concomitant]
     Route: 048
  6. GOREISAN [Concomitant]
     Route: 048
  7. LIVACT [Concomitant]
     Route: 048
  8. VOLTAREN [Concomitant]
  9. FAMOTIDINE [Concomitant]
     Route: 048
  10. CELECOXIB [Concomitant]
     Route: 048
  11. HALAVEN [Suspect]
     Indication: BREAST CANCER RECURRENT
     Route: 041
     Dates: start: 20110803, end: 20110922
  12. FENTANYL CITRATE [Concomitant]
  13. OXINORM [Concomitant]
     Route: 048
  14. HALAVEN [Suspect]
     Indication: METASTASES TO LIVER
  15. HALAVEN [Suspect]
     Indication: METASTASES TO PERITONEUM
  16. RABEPRAZOLE SODIUM [Concomitant]
     Route: 048
  17. LEVOFLOXACIN [Concomitant]
     Route: 048
  18. PRIMPERAN TAB [Concomitant]
     Route: 048
  19. HALAVEN [Suspect]
     Indication: METASTASES TO GALLBLADDER
  20. KAKKON-TO [Concomitant]
     Route: 048

REACTIONS (1)
  - PULMONARY HAEMORRHAGE [None]
